FAERS Safety Report 15411332 (Version 1)
Quarter: 2018Q3

REPORT INFORMATION
  Report Type: Spontaneous
  Country: US (occurrence: US)
  Receive Date: 20180921
  Receipt Date: 20180921
  Transmission Date: 20181010
  Serious: No
  Sender: FDA-Public Use
  Company Number: US-PFIZER INC-2018381712

PATIENT
  Age: 44 Year
  Sex: Male

DRUGS (2)
  1. XELJANZ [Suspect]
     Active Substance: TOFACITINIB CITRATE
     Dosage: 5 MG, 1X/DAY
     Route: 048
     Dates: start: 2018
  2. XELJANZ [Suspect]
     Active Substance: TOFACITINIB CITRATE
     Indication: COLITIS ULCERATIVE
     Dosage: 5 MG, 2X/DAY
     Route: 048
     Dates: start: 20180821, end: 2018

REACTIONS (14)
  - Confusional state [Recovering/Resolving]
  - Dry mouth [Recovering/Resolving]
  - Acne [Recovering/Resolving]
  - Dehydration [Recovering/Resolving]
  - Depression [Recovering/Resolving]
  - Nausea [Recovering/Resolving]
  - Vision blurred [Recovering/Resolving]
  - Feeling abnormal [Recovering/Resolving]
  - Seborrhoea [Recovering/Resolving]
  - Disturbance in attention [Unknown]
  - Sinusitis [Recovering/Resolving]
  - Intentional product misuse [Unknown]
  - Immune system disorder [Recovering/Resolving]
  - Abdominal distension [Recovering/Resolving]
